FAERS Safety Report 4692957-9 (Version None)
Quarter: 2005Q2

REPORT INFORMATION
  Report Type: 
  Country: None (occurrence: None)
  Receive Date: 20050617
  Receipt Date: 20050603
  Transmission Date: 20051028
  Serious: Yes (Hospitalization)
  Sender: FDA-Public Use
  Company Number: NO-JNJFOC-20050601232

PATIENT
  Age: 58 Year
  Sex: Male

DRUGS (4)
  1. REMICADE [Suspect]
     Indication: ANKYLOSING SPONDYLITIS
     Route: 042
  2. CELECOXIB [Concomitant]
     Route: 049
  3. AMLODIPINE [Concomitant]
     Route: 049
  4. CALCITRIOL [Concomitant]
     Route: 049

REACTIONS (2)
  - LEGIONELLA INFECTION [None]
  - PNEUMONIA [None]
